FAERS Safety Report 7516173-8 (Version None)
Quarter: 2011Q2

REPORT INFORMATION
  Report Type: 
  Country: None (occurrence: None)
  Receive Date: 20110601
  Receipt Date: 20110527
  Transmission Date: 20111010
  Serious: Yes (Other)
  Sender: FDA-Public Use
  Company Number: CA-ROCHE-779543

PATIENT
  Age: 59 Year
  Sex: Female

DRUGS (2)
  1. CELEBREX [Suspect]
     Route: 065
  2. NAPROXEN [Suspect]
     Route: 065

REACTIONS (6)
  - MUSCULOSKELETAL DISORDER [None]
  - VIRAL INFECTION [None]
  - FOOT FRACTURE [None]
  - ARTHRALGIA [None]
  - KNEE ARTHROPLASTY [None]
  - GASTRIC DISORDER [None]
